FAERS Safety Report 24294224 (Version 2)
Quarter: 2025Q3

REPORT INFORMATION
  Report Type: Spontaneous
  Country: US (occurrence: US)
  Receive Date: 20240906
  Receipt Date: 20250905
  Transmission Date: 20251020
  Serious: No
  Sender: DOMPE FARMACEUTICI
  Company Number: US-FARMAPROD-202406-2169

PATIENT
  Sex: Female

DRUGS (11)
  1. OXERVATE [Suspect]
     Active Substance: CENEGERMIN-BKBJ
     Indication: Neurotrophic keratopathy
     Route: 047
     Dates: start: 20240528
  2. OXERVATE [Suspect]
     Active Substance: CENEGERMIN-BKBJ
  3. TYRVAYA [Concomitant]
     Active Substance: VARENICLINE TARTRATE
  4. OMEPRAZOLE [Concomitant]
     Active Substance: OMEPRAZOLE
  5. CHOLECALCIFEROL [Concomitant]
     Active Substance: CHOLECALCIFEROL
  6. ZINC [Concomitant]
     Active Substance: ZINC
  7. VITAMIN C [Concomitant]
     Active Substance: ASCORBIC ACID
  8. ZYRTEC [Concomitant]
     Active Substance: CETIRIZINE HYDROCHLORIDE
  9. HYDROXYCHLOROQUINE SULFATE [Concomitant]
     Active Substance: HYDROXYCHLOROQUINE SULFATE
  10. SERTRALINE HYDROCHLORIDE [Concomitant]
     Active Substance: SERTRALINE HYDROCHLORIDE
  11. MELOXICAM GENFAR [Concomitant]

REACTIONS (5)
  - Eye pain [Unknown]
  - Illness [Not Recovered/Not Resolved]
  - Product dose omission issue [Unknown]
  - Cough [Not Recovered/Not Resolved]
  - Intentional product misuse [Unknown]
